FAERS Safety Report 9392641 (Version 1)
Quarter: 2013Q3

REPORT INFORMATION
  Report Type: Spontaneous
  Country: US (occurrence: None)
  Receive Date: 20130708
  Receipt Date: 20130708
  Transmission Date: 20140515
  Serious: Yes (Life-Threatening, Hospitalization)
  Sender: FDA-Public Use
  Company Number: None

PATIENT
  Age: 68 Year
  Sex: Male
  Weight: 80.74 kg

DRUGS (6)
  1. SULFAMETHOXAZOLE/TRIMETHOPRIM [Suspect]
     Indication: PROSTATIC SPECIFIC ANTIGEN INCREASED
     Dosage: 1 TABLET TWICE DAILY PO
     Route: 048
     Dates: start: 20130618, end: 20130704
  2. ATENOLOL [Concomitant]
  3. LISINOPRIL [Concomitant]
  4. AMLODIPINE [Concomitant]
  5. TERAZOSIN [Concomitant]
  6. HYDRALAZINE [Concomitant]

REACTIONS (4)
  - Muscular weakness [None]
  - Dizziness [None]
  - Hyperkalaemia [None]
  - Renal failure acute [None]
